FAERS Safety Report 16312142 (Version 1)
Quarter: 2019Q2

REPORT INFORMATION
  Report Type: Spontaneous
  Country: FR (occurrence: FR)
  Receive Date: 20190515
  Receipt Date: 20190515
  Transmission Date: 20190711
  Serious: Yes (Other)
  Sender: FDA-Public Use
  Company Number: FR-ACCORD-127544

PATIENT
  Age: 70 Year
  Sex: Male
  Weight: 81 kg

DRUGS (3)
  1. CAMPTO [Suspect]
     Active Substance: IRINOTECAN
     Indication: ADENOCARCINOMA OF COLON
     Route: 042
     Dates: start: 20171218, end: 201804
  2. OXALIPLATIN. [Suspect]
     Active Substance: OXALIPLATIN
     Indication: LUNG ADENOCARCINOMA
     Route: 042
     Dates: start: 20171218, end: 201804
  3. FLUOROURACIL. [Suspect]
     Active Substance: FLUOROURACIL
     Indication: LUNG ADENOCARCINOMA
     Dosage: LAST ADMINISTERED ON APR-2018
     Route: 042
     Dates: start: 20171218

REACTIONS (2)
  - Neuropathy peripheral [Not Recovered/Not Resolved]
  - Off label use [Unknown]

NARRATIVE: CASE EVENT DATE: 201803
